FAERS Safety Report 7402252-2 (Version None)
Quarter: 2011Q2

REPORT INFORMATION
  Report Type: 
  Country: None (occurrence: None)
  Receive Date: 20110408
  Receipt Date: 20090930
  Transmission Date: 20111010
  Serious: Yes (Disabling, Other)
  Sender: FDA-Public Use
  Company Number: US-BAYER-200940946NA

PATIENT
  Age: 53 Year
  Sex: Male
  Weight: 58.503 kg

DRUGS (9)
  1. HEPARIN [Concomitant]
     Dosage: 1000 U, UNK
     Route: 042
     Dates: start: 20060915, end: 20060915
  2. GELFOAM [Concomitant]
     Dosage: 1 G PACKET, UNK
     Route: 061
     Dates: start: 20060915, end: 20060915
  3. ACETYLSALICYLIC ACID SRT [Concomitant]
     Dosage: UNK
     Route: 048
     Dates: start: 20050101
  4. PAPAVERINE [Concomitant]
     Dosage: UNK
     Dates: start: 20060915, end: 20060915
  5. BACITRACIN [Concomitant]
     Dosage: 50000 U, UNK
     Dates: start: 20060915, end: 20060915
  6. SIMVASTATIN [Concomitant]
     Dosage: UNK
     Route: 048
     Dates: start: 20050101
  7. SPIRONOLACTONE [Concomitant]
     Dosage: UNK UNK, PRN
     Route: 048
     Dates: start: 20040511
  8. TRASYLOL [Suspect]
     Indication: CORONARY ARTERY BYPASS
     Dosage: UNK
     Dates: start: 20060915
  9. LISINOPRIL [Concomitant]
     Dosage: UNK
     Route: 048
     Dates: start: 20050101

REACTIONS (14)
  - RENAL FAILURE [None]
  - INJURY [None]
  - UNEVALUABLE EVENT [None]
  - PAIN [None]
  - NERVOUSNESS [None]
  - ANXIETY [None]
  - DEPRESSION [None]
  - ANHEDONIA [None]
  - MULTI-ORGAN FAILURE [None]
  - RENAL INJURY [None]
  - FEAR [None]
  - MENTAL DISORDER [None]
  - FEAR OF DEATH [None]
  - DISABILITY [None]
